FAERS Safety Report 23153524 (Version 1)
Quarter: 2023Q4

REPORT INFORMATION
  Report Type: Spontaneous
  Country: BE (occurrence: BE)
  Receive Date: 20231107
  Receipt Date: 20231107
  Transmission Date: 20240110
  Serious: Yes (Life-Threatening, Other)
  Sender: FDA-Public Use
  Company Number: None

PATIENT
  Sex: Male
  Weight: 67 kg

DRUGS (4)
  1. LEVOTHYROXINE SODIUM [Suspect]
     Active Substance: LEVOTHYROXINE SODIUM
     Indication: Thyroid disorder
     Dosage: 50 UG, QD (1/DAY 30^ BEFORE EATING; 50UG, 1D)
     Route: 048
     Dates: start: 20210707, end: 20220520
  2. AMIODARONE HYDROCHLORIDE [Suspect]
     Active Substance: AMIODARONE HYDROCHLORIDE
     Indication: Heart rate abnormal
     Dosage: 200 MG, QD (1 TABLET DURING THE FOOD; 200MG, 1D)
     Route: 048
     Dates: start: 201910, end: 20220307
  3. CLOPIDOGREL BISULFATE [Suspect]
     Active Substance: CLOPIDOGREL BISULFATE
     Indication: Coagulopathy
     Dosage: 75 MG, QD (1 PER DAY; 75MG, 1D)
     Route: 048
     Dates: start: 20191114, end: 20220720
  4. EZETIMIBE\SIMVASTATIN [Suspect]
     Active Substance: EZETIMIBE\SIMVASTATIN
     Indication: Low density lipoprotein increased
     Dosage: 1 DF, QD
     Route: 048
     Dates: start: 20191114, end: 20211020

REACTIONS (11)
  - Liver injury [Recovering/Resolving]
  - Visual impairment [Recovering/Resolving]
  - Heart rate decreased [Recovering/Resolving]
  - Muscle spasms [Recovering/Resolving]
  - Dyspnoea [Recovering/Resolving]
  - Poor quality sleep [Recovering/Resolving]
  - Feeling abnormal [Recovering/Resolving]
  - Fatigue [Recovering/Resolving]
  - Vomiting [Recovering/Resolving]
  - Thyroid disorder [Recovering/Resolving]
  - Device power source issue [Recovering/Resolving]
